FAERS Safety Report 21469087 (Version 1)
Quarter: 2022Q4

REPORT INFORMATION
  Report Type: Spontaneous
  Country: US (occurrence: US)
  Receive Date: 20221018
  Receipt Date: 20221018
  Transmission Date: 20230113
  Serious: Yes (Hospitalization, Other)
  Sender: FDA-Public Use
  Company Number: US-IPCA LABORATORIES LIMITED-IPC-2022-US-001695

PATIENT

DRUGS (1)
  1. HYDROXYCHLOROQUINE [Suspect]
     Active Substance: HYDROXYCHLOROQUINE
     Indication: Systemic lupus erythematosus
     Dosage: UNK
     Route: 065

REACTIONS (6)
  - Cardiotoxicity [Recovering/Resolving]
  - Cardiogenic shock [Recovering/Resolving]
  - Asthenia [Recovering/Resolving]
  - Ejection fraction decreased [Recovering/Resolving]
  - Pericardial effusion [Recovering/Resolving]
  - Cardiac tamponade [Recovering/Resolving]
